FAERS Safety Report 5262901-4 (Version None)
Quarter: 2007Q1

REPORT INFORMATION
  Report Type: 
  Country: None (occurrence: None)
  Receive Date: 20070308
  Receipt Date: 20070221
  Transmission Date: 20070707
  Serious: Yes (Death)
  Sender: FDA-Public Use
  Company Number: E2020-01002-SPO-JP

PATIENT
  Age: 72 Year
  Sex: Male

DRUGS (1)
  1. ARICEPT [Suspect]
     Indication: DEMENTIA ALZHEIMER'S TYPE
     Dosage: 3 MG, 1 IN 1 D, ORAL
     Route: 048
     Dates: start: 20070206, end: 20070214

REACTIONS (2)
  - INSOMNIA [None]
  - MALAISE [None]
